FAERS Safety Report 6022223-0 (Version None)
Quarter: 2008Q4

REPORT INFORMATION
  Report Type: 
  Country: None (occurrence: None)
  Receive Date: 20081229
  Receipt Date: 20081222
  Transmission Date: 20090506
  Serious: Yes (Hospitalization)
  Sender: FDA-Public Use
  Company Number: GB-ELI_LILLY_AND_COMPANY-GB200811001642

PATIENT
  Sex: Male
  Weight: 101 kg

DRUGS (9)
  1. CIALIS [Suspect]
     Indication: ERECTILE DYSFUNCTION
     Dosage: 10 MG, UNKNOWN
     Route: 048
     Dates: start: 20030311, end: 20080912
  2. SIMVASTATIN [Concomitant]
     Dosage: 10 MG, UNKNOWN
     Route: 048
     Dates: start: 20030601
  3. ROSIGLITAZONE [Concomitant]
     Dosage: 4 MG, UNKNOWN
     Route: 048
     Dates: start: 20060701
  4. OMEPRAZOLE [Concomitant]
     Dosage: 20 MG, UNKNOWN
     Route: 048
     Dates: start: 20060401
  5. AMITRIPTYLINE [Concomitant]
     Dosage: 10 MG, UNKNOWN
     Route: 048
     Dates: start: 20030401
  6. BENDROFLUAZIDE [Concomitant]
     Dosage: 2.5 MG, UNKNOWN
     Route: 048
     Dates: start: 20010501
  7. VALSARTAN [Concomitant]
     Dosage: 100 MG, UNKNOWN
     Route: 048
     Dates: start: 20010501
  8. METFORMIN HCL [Concomitant]
     Dosage: 1000 MG, 2/D
     Route: 048
     Dates: start: 20010801
  9. ASPIRIN [Concomitant]
     Dosage: 75 MG, UNKNOWN
     Route: 048
     Dates: start: 20010801

REACTIONS (4)
  - CONFUSIONAL STATE [None]
  - DIZZINESS [None]
  - HEADACHE [None]
  - ORTHOSTATIC HYPOTENSION [None]
